FAERS Safety Report 22095969 (Version 1)
Quarter: 2023Q1

REPORT INFORMATION
  Report Type: Other
  Country: US (occurrence: US)
  Receive Date: 20230315
  Receipt Date: 20230315
  Transmission Date: 20230418
  Serious: Yes (Life-Threatening, Hospitalization)
  Sender: FDA-Public Use
  Company Number: US-ALVOGEN-2023089366

PATIENT
  Age: 62 Year
  Sex: Female

DRUGS (1)
  1. MINOCYCLINE [Suspect]
     Active Substance: MINOCYCLINE HYDROCHLORIDE
     Indication: Alopecia scarring
     Dosage: WAS STARTED 3 WEEKS EARLIER, THOUGH SHE DISCONTINUED IT 3 DAY BEFORE PRESENTATION.
     Route: 048

REACTIONS (4)
  - Meningitis aseptic [Unknown]
  - Drug reaction with eosinophilia and systemic symptoms [Unknown]
  - Therapy cessation [Unknown]
  - Off label use [Unknown]
